FAERS Safety Report 7244116-3 (Version None)
Quarter: 2011Q1

REPORT INFORMATION
  Report Type: 
  Country: None (occurrence: None)
  Receive Date: 20110125
  Receipt Date: 20110120
  Transmission Date: 20110831
  Serious: Yes (Life-Threatening, Hospitalization)
  Sender: FDA-Public Use
  Company Number: PL-GILEAD-2011-0035562

PATIENT
  Age: 32 Year
  Sex: Male
  Weight: 74 kg

DRUGS (3)
  1. TRUVADA [Suspect]
     Indication: HIV INFECTION
     Route: 048
     Dates: start: 20080121, end: 20100518
  2. ATAZANAVIR [Suspect]
     Indication: HIV INFECTION
     Route: 048
     Dates: start: 20080121, end: 20100518
  3. RITONAVIR [Suspect]
     Indication: HIV INFECTION
     Route: 048
     Dates: start: 20080121, end: 20100518

REACTIONS (2)
  - HEPATITIS C [None]
  - ALANINE AMINOTRANSFERASE INCREASED [None]
